FAERS Safety Report 5747261-4 (Version None)
Quarter: 2008Q2

REPORT INFORMATION
  Report Type: 
  Country: None (occurrence: None)
  Receive Date: 20080520
  Receipt Date: 20080428
  Transmission Date: 20081010
  Serious: Yes (Hospitalization)
  Sender: FDA-Public Use
  Company Number: ENTC2007-0177

PATIENT
  Age: 62 Year
  Sex: Male

DRUGS (5)
  1. STALEVO 100 [Suspect]
     Indication: PARKINSON'S DISEASE
     Dosage: ORAL
     Route: 048
     Dates: start: 20061001, end: 20070222
  2. SECTRAL [Concomitant]
  3. TRIVASTAL [Concomitant]
  4. ZESTORETIC [Concomitant]
  5. TAHOR [Concomitant]

REACTIONS (4)
  - COLITIS [None]
  - CONSTIPATION [None]
  - DIARRHOEA [None]
  - WEIGHT DECREASED [None]
